FAERS Safety Report 10512879 (Version 2)
Quarter: 2014Q4

REPORT INFORMATION
  Report Type: Spontaneous
  Country: US (occurrence: US)
  Receive Date: 20141013
  Receipt Date: 20141027
  Transmission Date: 20150528
  Serious: Yes (Hospitalization, Other)
  Sender: FDA-Public Use
  Company Number: US-AUROBINDO-AUR-APL-2014-10763

PATIENT
  Age: 18 Year
  Sex: Female

DRUGS (1)
  1. LAMOTRIGINE. [Suspect]
     Active Substance: LAMOTRIGINE
     Indication: BIPOLAR DISORDER
     Dosage: UNK
     Route: 065

REACTIONS (16)
  - Ureteric stenosis [Recovered/Resolved]
  - Rash maculo-papular [Recovered/Resolved]
  - Fatigue [Recovered/Resolved]
  - Urethral perforation [Recovered/Resolved]
  - Acute kidney injury [Unknown]
  - Blister [Recovered/Resolved]
  - Anuria [Recovered/Resolved]
  - Pyrexia [Recovered/Resolved]
  - Urethral obstruction [Recovered/Resolved]
  - Blood creatinine increased [Recovered/Resolved]
  - Rash generalised [Recovered/Resolved]
  - Skin exfoliation [Recovered/Resolved]
  - Hydronephrosis [Recovered/Resolved]
  - Malaise [Recovered/Resolved]
  - Toxic epidermal necrolysis [Recovered/Resolved]
  - Urine output decreased [Recovered/Resolved]
